FAERS Safety Report 6992079-8 (Version None)
Quarter: 2010Q3

REPORT INFORMATION
  Report Type: 
  Country: None (occurrence: None)
  Receive Date: 20100917
  Receipt Date: 20100913
  Transmission Date: 20110219
  Serious: Yes (Death, Other)
  Sender: FDA-Public Use
  Company Number: US-CELGENEUS-163-21880-10091144

PATIENT
  Sex: Male
  Weight: 88 kg

DRUGS (2)
  1. REVLIMID [Suspect]
     Route: 048
     Dates: start: 20100802, end: 20100813
  2. AZACITIDINE [Suspect]
     Route: 051
     Dates: start: 20100802

REACTIONS (2)
  - ACUTE MYELOID LEUKAEMIA [None]
  - MENTAL STATUS CHANGES [None]
